FAERS Safety Report 8078376-6 (Version None)
Quarter: 2012Q1

REPORT INFORMATION
  Report Type: 
  Country: None (occurrence: None)
  Receive Date: 20120123
  Receipt Date: 20120109
  Transmission Date: 20120608
  Serious: Yes (Hospitalization, Other)
  Sender: FDA-Public Use
  Company Number: CIP11001337

PATIENT
  Age: 64 Year
  Sex: Female
  Weight: 67.1 kg

DRUGS (18)
  1. MULTIVITAMIN (ASCORBIC ACID, CALCIUM PANTOTHENATE, ERGOCALCIFEROL, NIC [Concomitant]
  2. ACTONEL [Suspect]
     Indication: OSTEOPOROSIS PROPHYLAXIS
     Dosage: 75 MG REGIMEN, ORAL
     Route: 048
     Dates: start: 20080420, end: 20090426
  3. FOSAMAX [Suspect]
     Indication: OSTEOPOROSIS PROPHYLAXIS
     Dosage: 70 MG, ORAL
     Route: 048
     Dates: start: 20020121, end: 20060101
  4. ALENDRONATE SODIUM [Suspect]
     Indication: OSTEOPOROSIS PROPHYLAXIS
     Dosage: 70 MG, ORAL
     Route: 048
     Dates: start: 20080212, end: 20080301
  5. PROMETHAZINE-CODEINE (CODEINE PHOSPHATE, PROMETHAZINE HYDROCHLORIDE) [Concomitant]
  6. KENALOG (TRIAMCINIOLONE ACETONIDE) [Concomitant]
  7. CLARITHROMYCIN [Concomitant]
  8. LIPITOR [Concomitant]
  9. CIMETIDINE [Concomitant]
  10. VITAMIN D (COLECALCIFEROL) [Concomitant]
  11. EUFLEXXA (HYALURONATE SODIUM) [Concomitant]
  12. AMOXICILLIN CLAVULANIC ACID (AMOXICILLIN TRIHYDRATE, CLAVULANATE POTAS [Concomitant]
  13. MEDROXYPROGESTERONE ACETATE [Concomitant]
  14. FISH OIL (FISH OIL) [Concomitant]
  15. ACTONEL [Suspect]
     Indication: OSTEOPOROSIS PROPHYLAXIS
     Dosage: 150 MG, ORAL
     Route: 048
     Dates: start: 20090426, end: 20100601
  16. ASCORBIC ACID [Concomitant]
  17. ASPIRIN [Concomitant]
  18. TUSSIONEX (HYDROCODONE, PHENYLTOLOXAMINE) [Concomitant]

REACTIONS (24)
  - FACE OEDEMA [None]
  - GINGIVAL INFECTION [None]
  - HYPOAESTHESIA ORAL [None]
  - ALPHA HAEMOLYTIC STREPTOCOCCAL INFECTION [None]
  - DIARRHOEA [None]
  - SALIVARY GLAND MASS [None]
  - LIP PAIN [None]
  - LIP SWELLING [None]
  - OSTEOMYELITIS [None]
  - OSTEONECROSIS OF JAW [None]
  - GINGIVAL SWELLING [None]
  - DENTAL CARIES [None]
  - PAIN IN JAW [None]
  - DENTAL FISTULA [None]
  - EXOSTOSIS [None]
  - TOOTHACHE [None]
  - TOOTH ABSCESS [None]
  - MASTICATION DISORDER [None]
  - CELLULITIS [None]
  - GINGIVAL BLISTER [None]
  - DEVICE BREAKAGE [None]
  - LEUKOCYTOSIS [None]
  - ERYTHEMA [None]
  - PURULENCE [None]
